FAERS Safety Report 12326717 (Version 1)
Quarter: 2016Q2

REPORT INFORMATION
  Report Type: Spontaneous
  Country: US (occurrence: None)
  Receive Date: 20160502
  Receipt Date: 20160502
  Transmission Date: 20160815
  Serious: Yes (Life-Threatening, Disabling)
  Sender: FDA-Public Use
  Company Number: None

PATIENT
  Age: 21 Year
  Sex: Female
  Weight: 99.79 kg

DRUGS (1)
  1. NEXPLANON [Suspect]
     Active Substance: ETONOGESTREL
     Indication: CONTRACEPTION
     Dosage: 1 INJECTION(S) IMPLANT IN ARM GIVEN INTO/UNDER THE SKIN
     Route: 058
     Dates: start: 20150102

REACTIONS (3)
  - Drug ineffective [None]
  - Malaise [None]
  - Polymenorrhagia [None]

NARRATIVE: CASE EVENT DATE: 20160422
